FAERS Safety Report 7890608-3 (Version None)
Quarter: 2011Q4

REPORT INFORMATION
  Report Type: 
  Country: None (occurrence: None)
  Receive Date: 20111103
  Receipt Date: 20110721
  Transmission Date: 20120403
  Serious: No
  Sender: FDA-Public Use
  Company Number: US-AMGEN-USASP2011037241

PATIENT
  Age: 45 Year
  Sex: Female
  Weight: 68.027 kg

DRUGS (16)
  1. ENBREL [Suspect]
     Indication: PRODUCT USED FOR UNKNOWN INDICATION
     Dosage: 50 MG, QWK
     Route: 058
  2. SAVELLA [Concomitant]
     Dosage: 12.5 MG, UNK
  3. XYREM [Concomitant]
     Dosage: 500 MG, UNK
  4. SOMA [Concomitant]
     Dosage: 250 MG, UNK
  5. KLONOPIN [Concomitant]
     Dosage: 2 MG, UNK
  6. SEROQUEL [Concomitant]
     Dosage: 25 MG, UNK
  7. OXYCODONE HCL [Concomitant]
     Dosage: 15 MG, UNK
  8. MAGNESIUM [Concomitant]
  9. VOLTAREN [Concomitant]
     Dosage: 1 UNK, UNK
  10. OMEGA 3 6 9 [Concomitant]
  11. GARLIC                             /01570501/ [Concomitant]
     Dosage: 320 MG, UNK
  12. PROBIOTIC FEMINA [Concomitant]
  13. AMPHETAMINE SULFATE [Concomitant]
     Dosage: 12.5 MG, UNK
  14. B COMPLEX                          /00212701/ [Concomitant]
  15. VITAMIN C                          /00008001/ [Concomitant]
     Dosage: 500 MG, UNK
  16. ANTIOXIDANT                        /02147801/ [Concomitant]

REACTIONS (1)
  - INCREASED APPETITE [None]
